FAERS Safety Report 4852563-X (Version None)
Quarter: 2005Q4

REPORT INFORMATION
  Report Type: 
  Country: None (occurrence: None)
  Receive Date: 20051123
  Receipt Date: 20050712
  Transmission Date: 20060501
  Serious: Yes (Hospitalization)
  Sender: FDA-Public Use
  Company Number: 05USA0152

PATIENT
  Age: 45 Year
  Sex: Male

DRUGS (4)
  1. GLIADEL [Suspect]
     Indication: GLIOBLASTOMA MULTIFORME
     Dates: start: 20050404
  2. TEMOZOLOMIDE (TEMOZOLOMIDE) (200 MILLIGRAM(S)/SQ.METER, UNKNOWN) [Suspect]
     Indication: GLIOBLASTOMA MULTIFORME
     Dosage: 200MG/M*2/DAY
     Dates: start: 20050408, end: 20050412
  3. TEMOZOLOMIDE (TEMOZOLOMIDE) (75 MILLIGRAM(S)/SQ.METER, UNKNOWN) [Suspect]
     Indication: GLIOBLASTOMA MULTIFORME
     Dosage: 75MG/M*2/DAY
     Dates: start: 20050509, end: 20050623
  4. ZONEGRAN [Concomitant]

REACTIONS (2)
  - CONVULSION [None]
  - OPERATIVE HAEMORRHAGE [None]
